FAERS Safety Report 8218087-7 (Version None)
Quarter: 2012Q1

REPORT INFORMATION
  Report Type: 
  Country: None (occurrence: None)
  Receive Date: 20120305
  Receipt Date: 20111121
  Transmission Date: 20120608
  Serious: No
  Sender: FDA-Public Use
  Company Number: 1000025673

PATIENT
  Age: 50 Year
  Sex: Female

DRUGS (11)
  1. DALIRESP [Suspect]
     Indication: CHRONIC OBSTRUCTIVE PULMONARY DISEASE
     Dosage: 500 MCG (500 MCG, 1 IN 1 D) ORAL
     Route: 048
     Dates: start: 20111119
  2. SPIRIVA [Concomitant]
  3. FLONASE [Concomitant]
  4. ADVAIR (FLUTICASONE) [Concomitant]
  5. PROAIR (FLUTICASONE PROPIONATE) [Concomitant]
  6. ASPIRIN [Concomitant]
  7. NEXIUM [Concomitant]
  8. ALBUTEROL [Concomitant]
  9. MELOXICAM [Concomitant]
  10. HYDROCHLOROTHIAZIDE [Concomitant]
  11. SINGULAIR [Concomitant]

REACTIONS (2)
  - FLUSHING [None]
  - HEART RATE INCREASED [None]
